FAERS Safety Report 10181477 (Version 1)
Quarter: 2014Q2

REPORT INFORMATION
  Report Type: Spontaneous
  Country: GB (occurrence: GB)
  Receive Date: 20140519
  Receipt Date: 20140519
  Transmission Date: 20141212
  Serious: Yes (Other)
  Sender: FDA-Public Use
  Company Number: GB-TEVA-481329ISR

PATIENT
  Age: 85 Year
  Sex: Female
  Weight: 61.3 kg

DRUGS (20)
  1. WARFARIN [Suspect]
     Indication: MITRAL VALVE REPLACEMENT
     Dosage: AS PER INR
     Route: 048
     Dates: start: 20130201
  2. LINEZOLID [Interacting]
     Indication: ENTEROCOCCAL INFECTION
     Route: 048
     Dates: start: 20140425
  3. ASPIRIN [Concomitant]
  4. BENZYDAMINE [Concomitant]
  5. BISOPROLOL [Concomitant]
  6. CANDESARTAN [Concomitant]
  7. COLECALCIFEROL [Concomitant]
  8. DIGOXIN [Concomitant]
  9. DOXAZOSIN [Concomitant]
  10. FUROSEMIDE [Concomitant]
  11. GTN [Concomitant]
  12. LACTULOSE [Concomitant]
  13. LANSOPRAZOLE [Concomitant]
  14. OXYCONTIN [Concomitant]
  15. OXYNORM [Concomitant]
  16. PARACETAMOL [Concomitant]
  17. ISOSORBIDE MONONITRATE [Concomitant]
  18. LORAZEPAM [Concomitant]
  19. SNO TEARS [Concomitant]
  20. SODIUM DOCUSATE [Concomitant]

REACTIONS (3)
  - Coagulation time prolonged [Recovered/Resolved]
  - Potentiating drug interaction [Unknown]
  - International normalised ratio increased [Recovered/Resolved]
